FAERS Safety Report 8315299-9 (Version None)
Quarter: 2012Q2

REPORT INFORMATION
  Report Type: 
  Country: None (occurrence: None)
  Receive Date: 20120426
  Receipt Date: 20120423
  Transmission Date: 20120825
  Serious: Yes (Hospitalization)
  Sender: FDA-Public Use
  Company Number: US-PFIZER INC-2012100377

PATIENT
  Sex: Male
  Weight: 73.923 kg

DRUGS (7)
  1. OMEPRAZOLE [Concomitant]
     Indication: DYSPEPSIA
     Dosage: 20 MG, DAILY
  2. ASPIRIN [Concomitant]
     Indication: ANTICOAGULANT THERAPY
     Dosage: 300 MG, DAILY
  3. METFORMIN [Concomitant]
     Indication: TYPE 2 DIABETES MELLITUS
     Dosage: 500 MG, DAILY
  4. LIPITOR [Suspect]
     Indication: BLOOD CHOLESTEROL INCREASED
     Dosage: 10 MG, DAILY
     Dates: start: 20040801
  5. AMLODIPINE BESYLATE AND BENAZEPRIL HCL [Concomitant]
     Indication: ANGIOPATHY
     Dosage: 10/20 MG, DAILY
  6. ALLOPURINOL [Concomitant]
     Indication: GOUT
     Dosage: 100 MG, 2X/DAY
  7. METOPROLOL [Concomitant]
     Indication: HYPERTENSION
     Dosage: 25 MG, 2X/DAY

REACTIONS (1)
  - CARDIAC PACEMAKER INSERTION [None]
